FAERS Safety Report 7577958-5 (Version None)
Quarter: 2011Q2

REPORT INFORMATION
  Report Type: 
  Country: None (occurrence: None)
  Receive Date: 20110628
  Receipt Date: 20110615
  Transmission Date: 20111010
  Serious: Yes (Hospitalization)
  Sender: FDA-Public Use
  Company Number: JP-ROCHE-784493

PATIENT
  Age: 45 Year

DRUGS (4)
  1. HERCEPTIN [Suspect]
     Indication: BREAST CANCER METASTATIC
     Dosage: LOADING DOSE
     Route: 041
  2. HERCEPTIN [Suspect]
     Dosage: MAINTENANCE DOSE
     Route: 041
  3. TAMOXIFEN CITRATE [Concomitant]
     Route: 048
  4. DOCETAXEL [Concomitant]
     Route: 041

REACTIONS (1)
  - RECALL PHENOMENON [None]
